FAERS Safety Report 6145286-0 (Version None)
Quarter: 2009Q2

REPORT INFORMATION
  Report Type: 
  Country: None (occurrence: None)
  Receive Date: 20090406
  Receipt Date: 20090327
  Transmission Date: 20091009
  Serious: No
  Sender: FDA-Public Use
  Company Number: US-B.I. PHARMACEUTICALS,INC./RIDGEFIELD-2009-BP-03974BP

PATIENT
  Age: 65 Year
  Sex: Male

DRUGS (9)
  1. SPIRIVA [Suspect]
     Indication: CHRONIC OBSTRUCTIVE PULMONARY DISEASE
     Dosage: 18MCG
     Route: 055
     Dates: start: 20080201
  2. SPIRIVA [Suspect]
     Indication: EMPHYSEMA
  3. SYMBICORT [Concomitant]
     Indication: CHRONIC OBSTRUCTIVE PULMONARY DISEASE
  4. SYMBICORT [Concomitant]
     Indication: EMPHYSEMA
  5. DOXAZOSIN MESILATE [Concomitant]
     Indication: HYPERTENSION
     Dosage: 2MG
     Route: 048
     Dates: start: 20081001
  6. ENABLEX [Concomitant]
     Indication: PROSTATIC DISORDER
     Dosage: 15MG
     Route: 048
     Dates: start: 20090101
  7. ASPIRIN [Concomitant]
     Indication: PROPHYLAXIS
     Dosage: 81MG
     Route: 048
  8. TEMAZEPAM [Concomitant]
     Indication: SLEEP DISORDER
  9. TRAZODONE [Concomitant]
     Indication: SLEEP DISORDER

REACTIONS (2)
  - DYSPNOEA [None]
  - DYSURIA [None]
